FAERS Safety Report 12068030 (Version 1)
Quarter: 2016Q1

REPORT INFORMATION
  Report Type: Spontaneous
  Country: US (occurrence: US)
  Receive Date: 20160211
  Receipt Date: 20160211
  Transmission Date: 20160526
  Serious: No
  Sender: FDA-Public Use
  Company Number: US-SMITH AND NEPHEW, INC-2015SMT00250

PATIENT
  Age: 84 Year
  Sex: Female
  Weight: 63.49 kg

DRUGS (7)
  1. CLOPIDOGREL [Concomitant]
     Active Substance: CLOPIDOGREL BISULFATE
     Dosage: UNK
  2. AMLODIPINE [Concomitant]
     Active Substance: AMLODIPINE BESYLATE
     Dosage: 5 MG, UNK
  3. UNSPECIFIED GLAUCOMA EYE DROP [Concomitant]
     Route: 047
  4. REGRANEX [Suspect]
     Active Substance: BECAPLERMIN
     Indication: SKIN ULCER
     Dosage: UNK UNK, 1X/DAY
     Route: 061
     Dates: start: 20150806
  5. BABY ASPIRIN [Concomitant]
     Active Substance: ASPIRIN
  6. ALPRAZOLAM. [Concomitant]
     Active Substance: ALPRAZOLAM
     Dosage: 25 MG, UNK
  7. NADOLOL. [Concomitant]
     Active Substance: NADOLOL

REACTIONS (7)
  - Application site infection [Unknown]
  - Application site pain [Recovered/Resolved]
  - Blister [Recovered/Resolved]
  - Application site dryness [Not Recovered/Not Resolved]
  - Off label use [Not Recovered/Not Resolved]
  - Application site exfoliation [Not Recovered/Not Resolved]
  - Application site erythema [Recovering/Resolving]

NARRATIVE: CASE EVENT DATE: 20150806
